FAERS Safety Report 7233063-9 (Version None)
Quarter: 2011Q1

REPORT INFORMATION
  Report Type: 
  Country: None (occurrence: None)
  Receive Date: 20110106
  Receipt Date: 20101222
  Transmission Date: 20110831
  Serious: Yes (Other)
  Sender: FDA-Public Use
  Company Number: TPA2010A06410

PATIENT
  Age: 53 Year
  Sex: Male

DRUGS (1)
  1. ADENURIC (FEBUXOSTAT) [Suspect]
     Indication: PRODUCT USED FOR UNKNOWN INDICATION
     Dosage: 80 MG (80 MG,1 IN 1 D) ORAL
     Route: 048
     Dates: start: 20100101

REACTIONS (2)
  - ATRIOVENTRICULAR BLOCK [None]
  - EXTRASYSTOLES [None]
